FAERS Safety Report 24803099 (Version 1)
Quarter: 2025Q1

REPORT INFORMATION
  Report Type: Spontaneous
  Country: GB (occurrence: GB)
  Receive Date: 20250103
  Receipt Date: 20250103
  Transmission Date: 20250408
  Serious: Yes (Other)
  Sender: TEVA
  Company Number: None

PATIENT
  Sex: Male
  Weight: 98 kg

DRUGS (1)
  1. TADALAFIL [Suspect]
     Active Substance: TADALAFIL
     Indication: Adverse drug reaction
     Route: 065
     Dates: end: 20241227

REACTIONS (2)
  - Ocular hypertension [Recovered/Resolved with Sequelae]
  - Lenticular pigmentation [Not Recovered/Not Resolved]

NARRATIVE: CASE EVENT DATE: 20241215
